FAERS Safety Report 8537733-1 (Version None)
Quarter: 2012Q3

REPORT INFORMATION
  Report Type: 
  Country: None (occurrence: None)
  Receive Date: 20120725
  Receipt Date: 20120719
  Transmission Date: 20120928
  Serious: Yes (Hospitalization, Other)
  Sender: FDA-Public Use
  Company Number: PHHY2012DE037659

PATIENT
  Sex: Male
  Weight: 94 kg

DRUGS (27)
  1. BERLINSULIN [Concomitant]
     Indication: DIABETES MELLITUS
     Dosage: 26 IU/DAY
     Route: 058
     Dates: start: 20070115
  2. INHIBITORS OF NSAID GROUP [Concomitant]
  3. ASPIRIN [Concomitant]
     Dosage: 100 MG/DAY
     Dates: start: 20110615
  4. SIMVASTATIN [Concomitant]
     Dosage: 20 MG
     Dates: start: 20110615, end: 20110714
  5. RASILEZ [Suspect]
     Dosage: 150 MG/DAY
     Route: 048
     Dates: start: 20110318, end: 20120215
  6. METOPROLOL SUCCINATE [Concomitant]
     Indication: HYPERTENSION
     Dosage: 190 MG/DAY
     Route: 048
     Dates: start: 20060601
  7. BERLINSULIN BASAL [Concomitant]
     Indication: DIABETES MELLITUS
     Dosage: 16 IU/DAY
     Route: 058
     Dates: start: 20090615
  8. DIURETICS [Concomitant]
  9. VASODILATORS USED IN CARDIAC DISEASES [Concomitant]
     Dates: end: 20110617
  10. PLAVIX [Concomitant]
     Dosage: 75 MG/DAY
     Dates: start: 20110615, end: 20110714
  11. RASILEZ [Suspect]
     Dosage: 300 MG/DAY
     Route: 048
     Dates: start: 20090112, end: 20120317
  12. TORSEMIDE [Concomitant]
     Indication: HYPERTENSION
     Dosage: 10 MG/DAY
     Dates: start: 20070101, end: 20120410
  13. THIENOPYRIDINE [Concomitant]
  14. ACE INHIBITORS [Concomitant]
  15. ACE INHIBITORS [Concomitant]
     Dates: start: 20120412
  16. CALCIUM CHANNEL BLOCKERS [Concomitant]
     Dates: start: 20120412
  17. MOLSIHEXAL [Concomitant]
     Dosage: 4 MG/DAY
     Dates: start: 20070101, end: 20110617
  18. PENTAERYTHRITOL TETRANITRATE [Concomitant]
     Indication: ANGINA PECTORIS
     Dosage: 160 MG/DAY
     Route: 048
     Dates: start: 20110317, end: 20110616
  19. BETA BLOCKING AGENTS [Concomitant]
  20. HMG COA REDUCTASE INHIBITORS [Concomitant]
  21. RASILEZ [Suspect]
     Indication: HYPERTENSION
     Dosage: 150 MG/DAY
     Route: 048
     Dates: start: 20081124, end: 20090111
  22. DOXAZOSIN MESYLATE [Concomitant]
     Indication: HYPERTENSION
     Dosage: 4MG/DAY
     Route: 048
     Dates: start: 20110317
  23. METFORMIN HYDROCHLORIDE [Concomitant]
     Indication: DIABETES MELLITUS
     Dosage: 2000 MG/DAY
     Route: 048
     Dates: start: 20070828
  24. PLATELET AGGREGATION INHIBITORS [Concomitant]
  25. CARMEN ACE [Concomitant]
     Dosage: 10 PLUS 20 MG PER DAY
     Route: 048
     Dates: start: 20120412
  26. TORSEMIDE [Concomitant]
     Dosage: 20 MG/DAY
     Route: 048
     Dates: start: 20120411
  27. CARMEN ACE [Concomitant]
     Indication: HYPERTENSION
     Dosage: 20 PLUS 40 MG PER DAY
     Route: 048
     Dates: start: 20081124, end: 20120411

REACTIONS (4)
  - AORTIC STENOSIS [None]
  - BLOOD PRESSURE SYSTOLIC INCREASED [None]
  - CORONARY ARTERY DISEASE [None]
  - DYSPNOEA [None]
